FAERS Safety Report 18007128 (Version 1)
Quarter: 2020Q3

REPORT INFORMATION
  Report Type: Report from Study
  Country: US (occurrence: US)
  Receive Date: 20200710
  Receipt Date: 20200710
  Transmission Date: 20201103
  Serious: Yes (Hospitalization, Other)
  Sender: FDA-Public Use
  Company Number: US-FRESENIUS KABI-FK202006887

PATIENT
  Age: 55 Year
  Sex: Female
  Weight: 53.5 kg

DRUGS (65)
  1. ACICLOVIR SODIUM [Concomitant]
     Active Substance: ACYCLOVIR SODIUM
     Indication: ANTIVIRAL PROPHYLAXIS
     Route: 048
     Dates: start: 20181008, end: 20200330
  2. FACTOR VIII (ANTIHAEMOPHILIC FACTOR)/FACTOR I (FIBRINOGEN)/FACTOR XIII (FIBRIN STABILISING FACTOR)/V [Concomitant]
     Route: 042
     Dates: start: 20200328, end: 20200328
  3. CEFEPIME [Concomitant]
     Active Substance: CEFEPIME HYDROCHLORIDE
     Indication: ANTIBIOTIC PROPHYLAXIS
     Route: 042
     Dates: start: 20200309, end: 20200323
  4. LOPERAMIDE [Concomitant]
     Active Substance: LOPERAMIDE
     Indication: DIARRHOEA
     Route: 048
     Dates: start: 20200319, end: 20200326
  5. SODIUM PHOSPHATE [Concomitant]
     Active Substance: SODIUM PHOSPHATE
     Indication: HYPOPHOSPHATAEMIA
     Route: 042
     Dates: start: 20200324, end: 20200327
  6. SODIUM POLYSTYRENE SULFONATE. [Concomitant]
     Active Substance: SODIUM POLYSTYRENE SULFONATE
     Indication: HYPERKALAEMIA
     Route: 048
     Dates: start: 20200326, end: 20200326
  7. BLOOD CELLS, PACKED HUMAN [Concomitant]
     Active Substance: HUMAN RED BLOOD CELL
     Dosage: 1 UNIT
     Route: 042
     Dates: start: 20200402, end: 20200402
  8. PLATELETS [Concomitant]
     Active Substance: HUMAN PLATELET, ALLOGENIC
     Dosage: 1 UNIT
     Route: 042
     Dates: start: 20200427, end: 20200427
  9. MAGNESIUM SULFATE. [Concomitant]
     Active Substance: MAGNESIUM SULFATE
     Indication: PROPHYLAXIS
     Route: 042
     Dates: start: 20200328, end: 20200328
  10. BLOOD CELLS, PACKED HUMAN [Concomitant]
     Active Substance: HUMAN RED BLOOD CELL
     Dosage: 1 UNIT
     Route: 042
     Dates: start: 20200405, end: 20200405
  11. LEVOFLOXACIN. [Concomitant]
     Active Substance: LEVOFLOXACIN
     Indication: ANTIBIOTIC PROPHYLAXIS
     Route: 048
     Dates: start: 20200304
  12. BENZOCAINE. [Concomitant]
     Active Substance: BENZOCAINE
     Indication: TONGUE ULCERATION
     Dosage: 1 APPLICATION
     Route: 065
     Dates: start: 20200401, end: 20200401
  13. HYDROCORTISONE SODIUM SUCCINATE [Concomitant]
     Active Substance: HYDROCORTISONE SODIUM SUCCINATE
     Indication: PROPHYLAXIS
     Route: 042
     Dates: start: 20200401, end: 20200402
  14. PLATELETS [Concomitant]
     Active Substance: HUMAN PLATELET, ALLOGENIC
     Dosage: 1 UNIT
     Route: 042
     Dates: start: 20200402, end: 20200402
  15. PLATELETS [Concomitant]
     Active Substance: HUMAN PLATELET, ALLOGENIC
     Dosage: 1 UNIT
     Route: 042
     Dates: start: 20200424, end: 20200424
  16. FACTOR VIII (ANTIHAEMOPHILIC FACTOR)/FACTOR I (FIBRINOGEN)/FACTOR XIII (FIBRIN STABILISING FACTOR)/V [Concomitant]
     Route: 042
     Dates: start: 20200325, end: 20200325
  17. BLOOD CELLS, PACKED HUMAN [Concomitant]
     Active Substance: HUMAN RED BLOOD CELL
     Indication: ANAEMIA
     Dosage: 1 UNIT
     Route: 042
     Dates: start: 20200325, end: 20200325
  18. BLOOD CELLS, PACKED HUMAN [Concomitant]
     Active Substance: HUMAN RED BLOOD CELL
     Dosage: 1 UNIT
     Route: 042
     Dates: start: 20200414, end: 20200416
  19. FLUDARABINE [Suspect]
     Active Substance: FLUDARABINE PHOSPHATE
     Indication: B-CELL SMALL LYMPHOCYTIC LYMPHOMA
  20. CYCLOPHOSPHAMIDE. [Suspect]
     Active Substance: CYCLOPHOSPHAMIDE
     Indication: CHRONIC LYMPHOCYTIC LEUKAEMIA
     Route: 042
     Dates: start: 20200304, end: 20200306
  21. PROCHLORPERAZINE. [Concomitant]
     Active Substance: PROCHLORPERAZINE
     Indication: NAUSEA
     Route: 048
     Dates: start: 20200309
  22. HYDROMORPHONE [Concomitant]
     Active Substance: HYDROMORPHONE
     Indication: TONGUE ULCERATION
     Route: 048
     Dates: start: 20200330
  23. IMMUNOGLOBULINS NOS [Concomitant]
     Active Substance: IMMUNE GLOBULIN NOS
     Indication: THROMBOCYTOPENIA
     Route: 042
     Dates: start: 20200401, end: 20200402
  24. IMMUNOGLOBULINS NOS [Concomitant]
     Active Substance: IMMUNE GLOBULIN NOS
     Indication: PANCYTOPENIA
     Route: 042
     Dates: start: 20200428, end: 20200428
  25. TRIAMCINOLONE [Concomitant]
     Active Substance: TRIAMCINOLONE
     Indication: TONGUE ULCERATION
     Dosage: 1 APPLICATION
     Route: 004
     Dates: start: 20200330
  26. OXYGEN. [Concomitant]
     Active Substance: OXYGEN
     Dosage: 0?1 L/MIN
     Route: 045
     Dates: start: 202005
  27. PARACETAMOL [Concomitant]
     Active Substance: ACETAMINOPHEN
     Indication: PROPHYLAXIS
     Route: 048
     Dates: start: 20200309
  28. GUAIFENESIN/DEXTROMETHORPHAN HYDROBROMIDE [Concomitant]
     Indication: RHINOVIRUS INFECTION
     Route: 048
     Dates: start: 20200311
  29. FUROSEMIDE. [Concomitant]
     Active Substance: FUROSEMIDE
     Indication: OEDEMA PERIPHERAL
     Route: 048
     Dates: start: 20200329, end: 20200329
  30. MACROGOL [Concomitant]
     Active Substance: POLYETHYLENE GLYCOLS
     Indication: CONSTIPATION
     Route: 048
     Dates: start: 20200403
  31. OXYGEN. [Concomitant]
     Active Substance: OXYGEN
     Indication: RESPIRATORY SYNCYTIAL VIRUS INFECTION
     Route: 045
     Dates: start: 20200401
  32. PLATELETS [Concomitant]
     Active Substance: HUMAN PLATELET, ALLOGENIC
     Dosage: 1 UNIT
     Route: 042
     Dates: start: 20200326, end: 20200326
  33. PLATELETS [Concomitant]
     Active Substance: HUMAN PLATELET, ALLOGENIC
     Dosage: 1 UNIT
     Route: 042
     Dates: start: 20200328, end: 20200328
  34. BLOOD CELLS, PACKED HUMAN [Concomitant]
     Active Substance: HUMAN RED BLOOD CELL
     Dosage: 1 UNIT
     Route: 042
     Dates: start: 20200328, end: 20200328
  35. BLOOD CELLS, PACKED HUMAN [Concomitant]
     Active Substance: HUMAN RED BLOOD CELL
     Dosage: 1 UNIT
     Route: 042
     Dates: start: 20200421, end: 20200422
  36. BLOOD CELLS, PACKED HUMAN [Concomitant]
     Active Substance: HUMAN RED BLOOD CELL
     Dosage: 1 UNIT
     Route: 042
     Dates: start: 20200425, end: 20200426
  37. DIPHENHYDRAMINE. [Concomitant]
     Active Substance: DIPHENHYDRAMINE
     Indication: PROPHYLAXIS
     Route: 048
     Dates: start: 20200309
  38. IPRATROPIUM BROMIDE/SALBUTAMOL SULFATE [Concomitant]
     Active Substance: ALBUTEROL SULFATE\IPRATROPIUM BROMIDE
     Indication: WHEEZING
     Dates: start: 20200317
  39. CALENDULA OFFICINALIS/MERCURIALIS PERENNIS [Concomitant]
     Indication: TONGUE ULCERATION
     Dosage: 1 PACKET
     Route: 048
     Dates: start: 20200401, end: 20200401
  40. VALACICLOVIR [Concomitant]
     Active Substance: VALACYCLOVIR HYDROCHLORIDE
     Indication: ANTIVIRAL PROPHYLAXIS
     Route: 048
     Dates: start: 20200330, end: 20200405
  41. FACTOR VIII (ANTIHAEMOPHILIC FACTOR)/FACTOR I (FIBRINOGEN)/FACTOR XIII (FIBRIN STABILISING FACTOR)/V [Concomitant]
     Indication: HYPOFIBRINOGENAEMIA
     Route: 042
     Dates: start: 20200322, end: 20200322
  42. BLOOD CELLS, PACKED HUMAN [Concomitant]
     Active Substance: HUMAN RED BLOOD CELL
     Dosage: 2 UNIT
     Route: 042
     Dates: start: 20200410, end: 20200410
  43. BLOOD CELLS, PACKED HUMAN [Concomitant]
     Active Substance: HUMAN RED BLOOD CELL
     Dosage: 1 UNIT
     Route: 042
     Dates: start: 20200418, end: 20200419
  44. BLOOD CELLS, PACKED HUMAN [Concomitant]
     Active Substance: HUMAN RED BLOOD CELL
     Dosage: 1 UNIT
     Route: 042
     Dates: start: 20200428, end: 20200429
  45. BLOOD CELLS, PACKED HUMAN [Concomitant]
     Active Substance: HUMAN RED BLOOD CELL
     Dosage: 1 UNIT
     Route: 042
     Dates: start: 20200503, end: 20200503
  46. CYCLOPHOSPHAMIDE. [Suspect]
     Active Substance: CYCLOPHOSPHAMIDE
     Indication: B-CELL SMALL LYMPHOCYTIC LYMPHOMA
  47. NO DRUG NAME [Suspect]
     Active Substance: UNSPECIFIED INGREDIENT
     Indication: CHRONIC LYMPHOCYTIC LEUKAEMIA
     Dosage: 1 X 10^8 CAR + T CELLS, SINGLE
     Route: 042
     Dates: start: 20200311, end: 20200311
  48. BROMHEXINE HYDROCHLORIDE/SULFAMETHOXAZOLE/TRIMETHOPRIM/CLORPRENALINE HYDROCHLORIDE [Concomitant]
     Indication: ANTIBIOTIC PROPHYLAXIS
     Dosage: 800/160 MG; EVERY M, W AND F
     Route: 048
  49. ISAVUCONAZONIUM SULFATE [Concomitant]
     Active Substance: ISAVUCONAZONIUM SULFATE
     Indication: ANTIFUNGAL PROPHYLAXIS
     Route: 048
     Dates: start: 20200309
  50. ONDANSETRON [Concomitant]
     Active Substance: ONDANSETRON
     Indication: NAUSEA
     Route: 042
     Dates: start: 20200313
  51. FILGRASTIM [Concomitant]
     Active Substance: FILGRASTIM
     Indication: NEUTROPENIA
     Dosage: 300 MICROGRAMS
     Route: 058
     Dates: start: 20200312
  52. CALCIUM CARBONATE. [Concomitant]
     Active Substance: CALCIUM CARBONATE
     Indication: HYPOCALCAEMIA
     Route: 048
     Dates: start: 20200322
  53. MICAFUNGIN. [Concomitant]
     Active Substance: MICAFUNGIN SODIUM
     Indication: ANTIFUNGAL PROPHYLAXIS
     Route: 042
     Dates: start: 20200407
  54. MORPHINE [Concomitant]
     Active Substance: MORPHINE
     Indication: TONGUE ULCERATION
     Route: 048
     Dates: start: 20200401, end: 20200401
  55. DOCUSATE SODIUM/SENNA ALEXANDRINA [Concomitant]
     Active Substance: DOCUSATE SODIUM\SENNA LEAF
     Indication: CONSTIPATION
     Dosage: 8.6?50 MG
     Route: 048
     Dates: start: 20200403
  56. PLATELETS [Concomitant]
     Active Substance: HUMAN PLATELET, ALLOGENIC
     Indication: THROMBOCYTOPENIA
     Dosage: 1 UNIT
     Route: 042
     Dates: start: 20200323, end: 20200324
  57. PLATELETS [Concomitant]
     Active Substance: HUMAN PLATELET, ALLOGENIC
     Dosage: 1 UNIT
     Route: 042
     Dates: start: 20200330, end: 20200331
  58. PLATELETS [Concomitant]
     Active Substance: HUMAN PLATELET, ALLOGENIC
     Dosage: 1 UNIT
     Route: 042
     Dates: start: 20200403, end: 20200404
  59. PLATELETS [Concomitant]
     Active Substance: HUMAN PLATELET, ALLOGENIC
     Dosage: 1 UNIT
     Route: 042
     Dates: start: 20200406, end: 20200407
  60. FLUDARABINE [Suspect]
     Active Substance: FLUDARABINE PHOSPHATE
     Indication: CHRONIC LYMPHOCYTIC LEUKAEMIA
     Route: 042
     Dates: start: 20200304, end: 20200306
  61. FAMOTIDINE. [Concomitant]
     Active Substance: FAMOTIDINE
     Indication: PROPHYLAXIS
     Route: 042
     Dates: start: 20200309, end: 20200426
  62. DEXAMETHASONE. [Concomitant]
     Active Substance: DEXAMETHASONE
     Indication: CYTOKINE RELEASE SYNDROME
     Route: 042
     Dates: start: 20200319, end: 20200330
  63. PREGABALIN. [Concomitant]
     Active Substance: PREGABALIN
     Indication: TONGUE ULCERATION
     Route: 048
     Dates: start: 20200403
  64. TRAMADOL. [Concomitant]
     Active Substance: TRAMADOL
     Indication: TONGUE ULCERATION
     Route: 048
     Dates: start: 20200330
  65. BLOOD CELLS, PACKED HUMAN [Concomitant]
     Active Substance: HUMAN RED BLOOD CELL
     Dosage: 1 UNIT
     Route: 042
     Dates: start: 20200408, end: 20200408

REACTIONS (4)
  - Respiratory syncytial virus infection [Recovered/Resolved]
  - Anaemia [Recovered/Resolved]
  - Neutropenia [Recovered/Resolved]
  - Thrombocytopenia [Recovered/Resolved]

NARRATIVE: CASE EVENT DATE: 20200403
